FAERS Safety Report 5478964-7 (Version None)
Quarter: 2007Q4

REPORT INFORMATION
  Report Type: 
  Country: None (occurrence: None)
  Receive Date: 20071006
  Receipt Date: 20070917
  Transmission Date: 20080405
  Serious: Yes (Hospitalization, Other)
  Sender: FDA-Public Use
  Company Number: AU-PFIZER INC-2007068985

PATIENT
  Sex: Male
  Weight: 88 kg

DRUGS (2)
  1. DILANTIN [Suspect]
     Indication: EPILEPSY
  2. EPILIM [Concomitant]
     Route: 048

REACTIONS (2)
  - CONVULSION [None]
  - DRUG LEVEL BELOW THERAPEUTIC [None]
